FAERS Safety Report 4420950-X (Version None)
Quarter: 2004Q3

REPORT INFORMATION
  Report Type: 
  Country: None (occurrence: None)
  Receive Date: 20040809
  Receipt Date: 20040706
  Transmission Date: 20050211
  Serious: Yes (Hospitalization)
  Sender: FDA-Public Use
  Company Number: DE-BRISTOL-MYERS SQUIBB COMPANY-12631735

PATIENT
  Age: 34 Year
  Sex: Female
  Weight: 60 kg

DRUGS (1)
  1. TAXOL [Suspect]
     Indication: BREAST CANCER
     Dosage: THERAPY DATES: 03 TO 17-JUN-2004
     Route: 042
     Dates: start: 20040617, end: 20040617

REACTIONS (3)
  - HYPERVENTILATION [None]
  - HYPONATRAEMIA [None]
  - PANIC ATTACK [None]
